FAERS Safety Report 21732788 (Version 1)
Quarter: 2022Q4

REPORT INFORMATION
  Report Type: Report from Study
  Country: US (occurrence: US)
  Receive Date: 20221215
  Receipt Date: 20221215
  Transmission Date: 20230112
  Serious: No
  Sender: FDA-Public Use
  Company Number: US-ABBVIE-4232291

PATIENT
  Sex: Female

DRUGS (1)
  1. HUMIRA [Suspect]
     Active Substance: ADALIMUMAB
     Indication: Crohn^s disease
     Dosage: TWO PENS WITH 80 MG
     Route: 058

REACTIONS (3)
  - Injection site haemorrhage [Unknown]
  - Injection site warmth [Unknown]
  - Injection site papule [Unknown]
